FAERS Safety Report 9934416 (Version 1)
Quarter: 2014Q1

REPORT INFORMATION
  Report Type: Spontaneous
  Country: US (occurrence: US)
  Receive Date: 20140228
  Receipt Date: 20140228
  Transmission Date: 20141002
  Serious: No
  Sender: FDA-Public Use
  Company Number: US-ABBVIE-14P-163-1194052-00

PATIENT
  Sex: Male
  Weight: 90.8 kg

DRUGS (13)
  1. ANDROGEL [Suspect]
     Indication: BLOOD TESTOSTERONE DECREASED
     Dosage: 3 PUMPS
     Route: 061
     Dates: start: 1996
  2. HYDROCHLOROTHIAZIDE [Concomitant]
     Indication: HYPERTENSION
  3. LISINOPRIL [Concomitant]
     Indication: HYPERTENSION
  4. LIPITOR [Concomitant]
     Indication: BLOOD CHOLESTEROL INCREASED
  5. RANITIDINE [Concomitant]
     Indication: ULCER
  6. MAGNESIUM [Concomitant]
     Indication: MINERAL SUPPLEMENTATION
  7. VITAMIN D 2000 [Concomitant]
     Indication: VITAMIN SUPPLEMENTATION
  8. VITAMIN B COMPLEX [Concomitant]
     Indication: VITAMIN SUPPLEMENTATION
  9. FISH OIL [Concomitant]
     Indication: ROUTINE HEALTH MAINTENANCE
  10. VITAMIN E [Concomitant]
     Indication: VITAMIN SUPPLEMENTATION
  11. ZYPANAR [Concomitant]
     Indication: DYSPEPSIA
  12. FLEXERIL [Concomitant]
     Indication: MUSCLE RELAXANT THERAPY
  13. XANAX [Concomitant]
     Indication: ANXIETY

REACTIONS (4)
  - Dark circles under eyes [Not Recovered/Not Resolved]
  - Insomnia [Not Recovered/Not Resolved]
  - Drug administered at inappropriate site [Recovered/Resolved]
  - Product quality issue [Unknown]
